FAERS Safety Report 4482069-1 (Version None)
Quarter: 2004Q4

REPORT INFORMATION
  Report Type: 
  Country: None (occurrence: None)
  Receive Date: 20041020
  Receipt Date: 20041005
  Transmission Date: 20050328
  Serious: Yes (Other)
  Sender: FDA-Public Use
  Company Number: USA040156969

PATIENT
  Age: 64 Year
  Sex: Female

DRUGS (3)
  1. FORTEO [Suspect]
     Indication: OSTEOPOROSIS
     Dates: start: 20031001
  2. EVISTA [Concomitant]
  3. MOBIC [Concomitant]

REACTIONS (8)
  - BRAIN NEOPLASM [None]
  - DYSGRAPHIA [None]
  - FEELING JITTERY [None]
  - MULTIPLE SCLEROSIS [None]
  - PAIN [None]
  - PARKINSON'S DISEASE [None]
  - RASH PAPULAR [None]
  - RASH PRURITIC [None]
